FAERS Safety Report 11057481 (Version 1)
Quarter: 2015Q2

REPORT INFORMATION
  Report Type: Spontaneous
  Country: US (occurrence: US)
  Receive Date: 20150422
  Receipt Date: 20150422
  Transmission Date: 20150821
  Serious: No
  Sender: FDA-Public Use
  Company Number: US-ELI_LILLY_AND_COMPANY-US201503009416

PATIENT
  Sex: Male

DRUGS (2)
  1. EFFIENT [Suspect]
     Active Substance: PRASUGREL HYDROCHLORIDE
     Indication: STENT PLACEMENT
     Dosage: 10 MG, QD
     Route: 065
  2. ASPIRIN                            /00002701/ [Concomitant]
     Active Substance: ASPIRIN
     Dosage: UNK, UNKNOWN

REACTIONS (4)
  - Contusion [Unknown]
  - Vertigo [Unknown]
  - Inappropriate schedule of drug administration [Unknown]
  - Muscle rupture [Not Recovered/Not Resolved]
